FAERS Safety Report 22672683 (Version 11)
Quarter: 2023Q4

REPORT INFORMATION
  Report Type: Spontaneous
  Country: PL (occurrence: PL)
  Receive Date: 20230705
  Receipt Date: 20231025
  Transmission Date: 20240110
  Serious: Yes (Hospitalization, Other)
  Sender: FDA-Public Use
  Company Number: PL-MYLANLABS-2023M1064272

PATIENT
  Age: 26 Year
  Sex: Female

DRUGS (60)
  1. IBUPROFEN [Suspect]
     Active Substance: IBUPROFEN
     Indication: Analgesic therapy
     Dosage: 400 MILLIGRAM, BID
     Route: 065
  2. IBUPROFEN [Suspect]
     Active Substance: IBUPROFEN
     Indication: Pain
     Dosage: 800 MILLIGRAM, QD
     Route: 065
  3. IBUPROFEN [Suspect]
     Active Substance: IBUPROFEN
     Indication: Neuralgia
  4. VALPROIC ACID [Suspect]
     Active Substance: VALPROIC ACID
     Indication: Neuralgia
     Dosage: 300 MILLIGRAM, BID
     Route: 065
  5. VALPROIC ACID [Suspect]
     Active Substance: VALPROIC ACID
     Indication: Polyneuropathy
     Dosage: 600 MILLIGRAM, QD (2 X 300 MG)
     Route: 065
  6. VALPROIC ACID [Suspect]
     Active Substance: VALPROIC ACID
     Indication: Nervous system disorder
  7. FENTANYL [Suspect]
     Active Substance: FENTANYL\FENTANYL CITRATE
     Indication: Analgesic therapy
     Dosage: 150 MICROGRAM, QH
     Route: 062
  8. FENTANYL [Suspect]
     Active Substance: FENTANYL\FENTANYL CITRATE
     Indication: Pain
     Dosage: 150 MICROGRAM, Q3D
     Route: 062
  9. FENTANYL [Suspect]
     Active Substance: FENTANYL\FENTANYL CITRATE
     Indication: Neuralgia
     Dosage: 300 MICROGRAM, QH
     Route: 062
  10. FENTANYL [Suspect]
     Active Substance: FENTANYL\FENTANYL CITRATE
     Indication: Analgesic therapy
     Dosage: 300 MICROGRAM, QH, MUCOSAL SPRAY
     Route: 045
  11. FENTANYL [Suspect]
     Active Substance: FENTANYL\FENTANYL CITRATE
     Indication: Neuralgia
     Dosage: 150 MICROGRAM, Q3D
     Route: 045
  12. FENTANYL [Suspect]
     Active Substance: FENTANYL\FENTANYL CITRATE
     Indication: Pain
     Dosage: 150 MICROGRAM, QH
     Route: 045
  13. PREDNISONE [Suspect]
     Active Substance: PREDNISONE
     Indication: Analgesic therapy
     Dosage: 10 MILLIGRAM
     Route: 048
  14. PREDNISONE [Suspect]
     Active Substance: PREDNISONE
     Indication: Neuralgia
  15. PREDNISONE [Suspect]
     Active Substance: PREDNISONE
     Indication: Neuralgia
     Dosage: 10 MILLIGRAM, QD
     Route: 048
  16. PREDNISONE [Suspect]
     Active Substance: PREDNISONE
     Indication: Pain
     Dosage: 10 MILLIGRAM
     Route: 048
  17. CLONAZEPAM [Suspect]
     Active Substance: CLONAZEPAM
     Indication: Polyneuropathy
     Dosage: 1 MILLIGRAM, QD
     Route: 065
  18. CLONAZEPAM [Suspect]
     Active Substance: CLONAZEPAM
     Dosage: 1 MILLIGRAM, QD
  19. MORPHINE [Suspect]
     Active Substance: MORPHINE
     Indication: Pain
     Dosage: 30 MILLIGRAM, BID
     Route: 065
  20. MORPHINE [Suspect]
     Active Substance: MORPHINE
     Indication: Neuralgia
  21. PAROXETINE [Suspect]
     Active Substance: PAROXETINE
     Indication: Polyneuropathy
     Dosage: 40 MILLIGRAM, QD (MORNING)
     Route: 065
  22. PAROXETINE [Suspect]
     Active Substance: PAROXETINE
     Indication: Nervous system disorder
     Dosage: 80 MILLIGRAM
     Route: 065
  23. LEVETIRACETAM [Suspect]
     Active Substance: LEVETIRACETAM
     Indication: Nervous system disorder
     Dosage: 1000 MILLIGRAM, BID
     Route: 065
  24. LEVETIRACETAM [Suspect]
     Active Substance: LEVETIRACETAM
     Indication: Polyneuropathy
     Dosage: 800 MILLIGRAM, BID
     Route: 065
  25. LEVETIRACETAM [Suspect]
     Active Substance: LEVETIRACETAM
     Indication: Myoclonus
  26. LEVETIRACETAM [Suspect]
     Active Substance: LEVETIRACETAM
     Indication: Nervous system disorder
  27. PIRACETAM [Suspect]
     Active Substance: PIRACETAM
     Indication: Nervous system disorder
     Dosage: 2400 MILLIGRAM, BID
     Route: 065
  28. PIRACETAM [Suspect]
     Active Substance: PIRACETAM
     Indication: Polyneuropathy
     Dosage: 4800 MILLIGRAM
     Route: 065
  29. PIRACETAM [Suspect]
     Active Substance: PIRACETAM
     Indication: Nervous system disorder
     Dosage: 2400 MILLIGRAM, BID
  30. GABAPENTIN [Suspect]
     Active Substance: GABAPENTIN
     Indication: Nervous system disorder
     Dosage: 600 MILLIGRAM, QD
     Route: 065
  31. GABAPENTIN [Suspect]
     Active Substance: GABAPENTIN
     Indication: Polyneuropathy
     Dosage: 400 MILLIGRAM, TID
     Route: 065
  32. GABAPENTIN [Suspect]
     Active Substance: GABAPENTIN
     Indication: Neuralgia
     Dosage: 600 MILLIGRAM, Q8H
     Route: 065
  33. GABAPENTIN [Suspect]
     Active Substance: GABAPENTIN
     Dosage: 400 MILLIGRAM, Q8H
     Route: 065
  34. CLONAZEPAM [Concomitant]
     Active Substance: CLONAZEPAM
     Indication: Nervous system disorder
     Dosage: 0.5 MILLIGRAM, BID
     Route: 065
  35. CLONAZEPAM [Concomitant]
     Active Substance: CLONAZEPAM
     Indication: Polyneuropathy
     Dosage: 1 MILLIGRAM, QD (2 X 0.5 MG)
     Route: 065
  36. CLONAZEPAM [Concomitant]
     Active Substance: CLONAZEPAM
     Indication: Myoclonus
     Dosage: 0.5 MILLIGRAM, BID
  37. CLONAZEPAM [Concomitant]
     Active Substance: CLONAZEPAM
     Indication: Myoclonus
  38. CLONAZEPAM [Concomitant]
     Active Substance: CLONAZEPAM
     Indication: Nervous system disorder
  39. PIRACETAM [Concomitant]
     Active Substance: PIRACETAM
     Indication: Product used for unknown indication
     Dosage: UNK
     Route: 065
  40. AMITRIPTYLINE [Concomitant]
     Active Substance: AMITRIPTYLINE
     Indication: Pain
     Dosage: 50 MILLIGRAM, QD (AT BEDTIME)
     Route: 065
  41. AMITRIPTYLINE [Concomitant]
     Active Substance: AMITRIPTYLINE
     Dosage: 50 MILLIGRAM, QD (DAILY)
     Route: 065
  42. PAROXETINE [Concomitant]
     Active Substance: PAROXETINE
     Dosage: 40 MILLIGRAM, QD
     Route: 065
  43. DULOXETINE [Concomitant]
     Active Substance: DULOXETINE
     Indication: Pain
     Dosage: 30 MILLIGRAM, QD
     Route: 065
  44. DULOXETINE [Concomitant]
     Active Substance: DULOXETINE
     Dosage: 60 MILLIGRAM, QD
     Route: 065
  45. PIRACETAM [Concomitant]
     Active Substance: PIRACETAM
     Indication: Nervous system disorder
     Dosage: 2400 MILLIGRAM, BID
     Route: 065
  46. PIRACETAM [Concomitant]
     Active Substance: PIRACETAM
     Indication: Polyneuropathy
  47. PIRACETAM [Concomitant]
     Active Substance: PIRACETAM
     Indication: Nervous system disorder
  48. GABAPENTIN [Concomitant]
     Active Substance: GABAPENTIN
     Indication: Nervous system disorder
     Dosage: 400 MILLIGRAM, TID
     Route: 065
  49. GABAPENTIN [Concomitant]
     Active Substance: GABAPENTIN
     Indication: Polyneuropathy
     Dosage: 600 MILLIGRAM, Q8H
     Route: 065
  50. GABAPENTIN [Concomitant]
     Active Substance: GABAPENTIN
     Indication: Neuralgia
     Dosage: 600 MILLIGRAM, QD
     Route: 065
  51. GABAPENTIN [Concomitant]
     Active Substance: GABAPENTIN
     Dosage: 400 MILLIGRAM, Q8H
     Route: 065
  52. LEVETIRACETAM [Concomitant]
     Active Substance: LEVETIRACETAM
     Indication: Nervous system disorder
     Dosage: 800 MILLIGRAM, BID
     Route: 065
  53. LEVETIRACETAM [Concomitant]
     Active Substance: LEVETIRACETAM
     Indication: Polyneuropathy
     Dosage: 1000 MILLIGRAM, BID
     Route: 065
  54. LEVETIRACETAM [Concomitant]
     Active Substance: LEVETIRACETAM
     Indication: Myoclonus
  55. LEVETIRACETAM [Concomitant]
     Active Substance: LEVETIRACETAM
     Indication: Nervous system disorder
  56. AGOMELATINE [Concomitant]
     Active Substance: AGOMELATINE
     Indication: Product used for unknown indication
     Dosage: UNK
     Route: 065
  57. BUPRENORPHINE [Concomitant]
     Active Substance: BUPRENORPHINE
     Indication: Product used for unknown indication
     Dosage: 400 MICROGRAM
     Route: 065
  58. PREDNISONE [Concomitant]
     Active Substance: PREDNISONE
     Indication: Analgesic therapy
     Dosage: 10 MILLIGRAM
     Route: 065
  59. VALPROIC ACID [Concomitant]
     Active Substance: VALPROIC ACID
     Dosage: 300 MILLIGRAM, BID
     Route: 065
  60. IBUPROFEN [Concomitant]
     Active Substance: IBUPROFEN
     Indication: Analgesic therapy
     Dosage: 400 MILLIGRAM, BID
     Route: 065

REACTIONS (24)
  - Mitochondrial toxicity [Recovered/Resolved]
  - Neuralgia [Recovered/Resolved]
  - Restlessness [Recovered/Resolved]
  - Disorganised speech [Recovered/Resolved]
  - Pain in extremity [Recovered/Resolved]
  - Mitochondrial encephalomyopathy [Recovered/Resolved]
  - Disorientation [Recovered/Resolved]
  - Hypoaesthesia [Recovered/Resolved]
  - Speech disorder [Recovered/Resolved]
  - Myoclonus [Recovered/Resolved]
  - Condition aggravated [Recovered/Resolved]
  - Abdominal pain [Recovering/Resolving]
  - Somnolence [Recovered/Resolved]
  - Pain [Recovered/Resolved]
  - Drug dependence [Recovered/Resolved]
  - Drug abuse [Recovered/Resolved]
  - Drug ineffective [Unknown]
  - Wrong product administered [Unknown]
  - Communication disorder [Unknown]
  - Medication error [Unknown]
  - Product use issue [Unknown]
  - Off label use [Unknown]
  - Product selection error [Unknown]
  - Overdose [Unknown]

NARRATIVE: CASE EVENT DATE: 20220501
